FAERS Safety Report 10374215 (Version 1)
Quarter: 2014Q3

REPORT INFORMATION
  Report Type: Spontaneous
  Country: US (occurrence: US)
  Receive Date: 20140811
  Receipt Date: 20140811
  Transmission Date: 20150326
  Serious: No
  Sender: FDA-Public Use
  Company Number: US-009507513-1408USA000114

PATIENT
  Sex: Female

DRUGS (7)
  1. ASMANEX [Suspect]
     Active Substance: MOMETASONE FUROATE
     Indication: ASTHMA
     Dosage: ONE IN THE AM AND ONE PUFF IN THE PM
     Route: 055
  2. MINOCYCLINE [Concomitant]
     Active Substance: MINOCYCLINE\MINOCYCLINE HYDROCHLORIDE
  3. HYDROCHLOROTHIAZIDE. [Concomitant]
     Active Substance: HYDROCHLOROTHIAZIDE
  4. AMLODIPINE [Concomitant]
     Active Substance: AMLODIPINE BESYLATE
  5. CLARITIN [Concomitant]
     Active Substance: LORATADINE
  6. PRILOSEC [Concomitant]
     Active Substance: OMEPRAZOLE MAGNESIUM
  7. MEVACOR [Concomitant]
     Active Substance: LOVASTATIN

REACTIONS (3)
  - Product container issue [Unknown]
  - Oral fungal infection [Unknown]
  - Drug dose omission [Unknown]
